FAERS Safety Report 8523591-8 (Version None)
Quarter: 2012Q3

REPORT INFORMATION
  Report Type: 
  Country: None (occurrence: None)
  Receive Date: 20120720
  Receipt Date: 20101124
  Transmission Date: 20120928
  Serious: Yes (Hospitalization)
  Sender: FDA-Public Use
  Company Number: US-BAYER-201018949NA

PATIENT
  Age: 22 Year
  Sex: Female
  Weight: 100 kg

DRUGS (5)
  1. LEVOXYL [Concomitant]
     Dosage: UNK
     Dates: start: 20061005
  2. YAZ [Suspect]
     Route: 048
     Dates: start: 20050801, end: 20090615
  3. WELLBUTRIN [Concomitant]
  4. PHENTERMINE HYDROCHLORIDE [Concomitant]
     Dosage: UNK
     Dates: start: 20081113
  5. METFORMIN HYDROCHLORIDE [Concomitant]

REACTIONS (2)
  - CHOLELITHIASIS [None]
  - PREGNANCY [None]
